FAERS Safety Report 11517122 (Version 1)
Quarter: 2015Q3

REPORT INFORMATION
  Report Type: Spontaneous
  Country: US (occurrence: US)
  Receive Date: 20150917
  Receipt Date: 20150917
  Transmission Date: 20151125
  Serious: Yes (Hospitalization, Other)
  Sender: FDA-Public Use
  Company Number: US-GLAXOSMITHKLINE-US2015GSK133328

PATIENT
  Age: 15 Month
  Sex: Male

DRUGS (1)
  1. BUPROPION. [Suspect]
     Active Substance: BUPROPION
     Indication: PRODUCT USED FOR UNKNOWN INDICATION
     Dosage: UNK

REACTIONS (27)
  - Overdose [Unknown]
  - Seizure [Unknown]
  - Rhinorrhoea [Unknown]
  - Cough [Unknown]
  - Mydriasis [Recovered/Resolved]
  - Apraxia [Not Recovered/Not Resolved]
  - Unresponsive to stimuli [Unknown]
  - Status epilepticus [Recovered/Resolved]
  - Eye movement disorder [Recovered/Resolved]
  - Apnoea [Unknown]
  - Metabolic acidosis [Unknown]
  - Irregular breathing [Unknown]
  - Quadriparesis [Not Recovered/Not Resolved]
  - Sinus tachycardia [Unknown]
  - Cardio-respiratory arrest [Recovered/Resolved]
  - Alanine aminotransferase increased [Unknown]
  - Epilepsy [Not Recovered/Not Resolved]
  - Cardiac arrest [Recovered/Resolved]
  - Generalised tonic-clonic seizure [Recovered/Resolved]
  - Lethargy [Unknown]
  - Lactic acidosis [Unknown]
  - Electroencephalogram abnormal [Unknown]
  - Blindness cortical [Not Recovered/Not Resolved]
  - Microcytic anaemia [Unknown]
  - Hypoxic-ischaemic encephalopathy [Not Recovered/Not Resolved]
  - Pupillary light reflex tests abnormal [Recovered/Resolved]
  - Aspartate aminotransferase increased [Unknown]
